FAERS Safety Report 16183130 (Version 1)
Quarter: 2019Q2

REPORT INFORMATION
  Report Type: Report from Study
  Country: CO (occurrence: CO)
  Receive Date: 20190411
  Receipt Date: 20190411
  Transmission Date: 20190711
  Serious: Yes (Death, Hospitalization, Other)
  Sender: FDA-Public Use
  Company Number: CO-SA-2019SA098020

PATIENT
  Age: 60 Year
  Sex: Female

DRUGS (1)
  1. INSULIN GLULISINE [Suspect]
     Active Substance: INSULIN GLULISINE
     Indication: TYPE 2 DIABETES MELLITUS
     Dosage: 21 IU, TID
     Route: 058
     Dates: start: 20161120, end: 20190406

REACTIONS (3)
  - Gastrostomy [Unknown]
  - Cardiac arrest [Fatal]
  - Procedural complication [Unknown]

NARRATIVE: CASE EVENT DATE: 20190406
